FAERS Safety Report 6505596-1 (Version None)
Quarter: 2009Q4

REPORT INFORMATION
  Report Type: 
  Country: None (occurrence: None)
  Receive Date: 20091218
  Receipt Date: 20091211
  Transmission Date: 20100525
  Serious: Yes (Disabling, Other)
  Sender: FDA-Public Use
  Company Number: GB-PFIZER INC-2008048868

PATIENT
  Age: 44 Year
  Sex: Female
  Weight: 60.3 kg

DRUGS (2)
  1. CHAMPIX [Suspect]
     Dosage: UNK
     Route: 048
     Dates: start: 20080312, end: 20080509
  2. CO-CODAMOL [Concomitant]
     Indication: PAIN
     Dosage: 8 DF, 1X/DAY
     Route: 048
     Dates: start: 19990101

REACTIONS (6)
  - AGITATION [None]
  - DEPRESSION [None]
  - NEGATIVE THOUGHTS [None]
  - NIGHTMARE [None]
  - SUICIDAL IDEATION [None]
  - TEARFULNESS [None]
